FAERS Safety Report 8451523-X (Version None)
Quarter: 2012Q2

REPORT INFORMATION
  Report Type: 
  Country: None (occurrence: None)
  Receive Date: 20120323
  Receipt Date: 20111018
  Transmission Date: 20120825
  Serious: Yes (Other)
  Sender: FDA-Public Use
  Company Number: 163-21880-11102102

PATIENT
  Age: 61 Year
  Sex: Female
  Weight: 101.1521 kg

DRUGS (14)
  1. REVLIMID [Suspect]
     Indication: MULTIPLE MYELOMA
     Dosage: 25 MG, 1 IN 1 D, PO
     Route: 048
     Dates: start: 20101203
  2. GABAPENTIN [Concomitant]
  3. SPIRONOLACTONE [Concomitant]
  4. KLOR KON (POTASSIUM CHLORIDE) [Concomitant]
  5. METOPROLOL TARTRATE [Concomitant]
  6. COMBIVENT [Concomitant]
  7. HYDRLAZINE (HYDRALAZINE) [Concomitant]
  8. DEXAMETHASONE [Concomitant]
  9. IPRATROPIUM/ALBUTEROL (COMBIVENT) [Concomitant]
  10. ACYCLOVIR [Concomitant]
  11. ASPIRIN [Concomitant]
  12. FUROSEMIDE [Concomitant]
  13. OMEPRAZOLE [Concomitant]
  14. ISOSORBIDE (ISOSORBIDE) [Concomitant]

REACTIONS (1)
  - CHEST PAIN [None]
